FAERS Safety Report 7450164-0 (Version None)
Quarter: 2011Q2

REPORT INFORMATION
  Report Type: 
  Country: None (occurrence: None)
  Receive Date: 20110502
  Receipt Date: 20110425
  Transmission Date: 20111010
  Serious: No
  Sender: FDA-Public Use
  Company Number: US-PFIZER INC-2011089554

PATIENT
  Age: 58 Year
  Sex: Female

DRUGS (13)
  1. MILNACIPRAN HYDROCHLORIDE [Interacting]
     Indication: FIBROMYALGIA
     Dosage: 12.5 MG,
     Route: 048
     Dates: start: 20110201, end: 20110201
  2. CHANTIX [Suspect]
     Indication: SMOKING CESSATION THERAPY
     Dosage: UNK
     Dates: start: 20110408, end: 20110412
  3. PRAVASTATIN [Concomitant]
     Indication: BLOOD CHOLESTEROL INCREASED
     Dosage: UNK
  4. ZANAFLEX [Concomitant]
     Indication: SLEEP DISORDER
  5. MILNACIPRAN HYDROCHLORIDE [Interacting]
     Dosage: 12.5 MG, 2X/DAY
     Route: 048
     Dates: start: 20110201, end: 20110201
  6. MILNACIPRAN HYDROCHLORIDE [Interacting]
     Dosage: 50 MG, 2X/DAY
     Route: 048
     Dates: start: 20110201
  7. LISINOPRIL [Concomitant]
     Indication: HYPERTENSION
     Dosage: UNK
  8. ADVAIR DISKUS 100/50 [Concomitant]
     Indication: CHRONIC OBSTRUCTIVE PULMONARY DISEASE
     Dosage: UNK
  9. POTASSIUM [Concomitant]
     Dosage: UNK
  10. ZANAFLEX [Concomitant]
     Indication: MUSCLE RELAXANT THERAPY
     Dosage: 1-2 TABLETS EVERY 8 HOURS AS NEEDED
     Route: 048
  11. MILNACIPRAN HYDROCHLORIDE [Interacting]
     Dosage: 25 MG, 2X/DAY
     Route: 048
     Dates: start: 20110201, end: 20110201
  12. XANAX [Concomitant]
     Dosage: UNK
  13. NASONEX [Concomitant]
     Indication: SEASONAL ALLERGY
     Dosage: UNK

REACTIONS (2)
  - DRUG INTERACTION [None]
  - DRUG INEFFECTIVE [None]
